FAERS Safety Report 8926536 (Version 1)
Quarter: 2012Q4

REPORT INFORMATION
  Report Type: 
  Country: US (occurrence: US)
  Receive Date: 20121127
  Receipt Date: 20121127
  Transmission Date: 20130627
  Serious: Yes (Other)
  Sender: FDA-Public Use
  Company Number: US-BAYER-2012-121988

PATIENT
  Sex: Female

DRUGS (9)
  1. CIPRO [Suspect]
     Dosage: 250 mg, UNK
     Route: 048
  2. SYNTHROID [Concomitant]
     Dosage: 25 UNK, UNK
     Route: 048
  3. DIOVAN [Concomitant]
     Dosage: 160 mg, UNK
     Route: 048
  4. NORVASC [Concomitant]
     Dosage: 10 mg, UNK
     Route: 048
  5. PEPCID [Concomitant]
     Dosage: 20 mg, UNK
     Route: 048
  6. VALIUM [Concomitant]
     Dosage: 2 mg, UNK
     Route: 048
  7. MULTIPLE VITAMINS [Concomitant]
     Route: 048
  8. OMEGA-3 FATTY ACIDS [Concomitant]
     Dosage: 1200 mg, UNK
     Route: 048
  9. CRANBERRY [Concomitant]

REACTIONS (3)
  - Drug hypersensitivity [None]
  - Rash [None]
  - Pruritus [None]
